FAERS Safety Report 23345304 (Version 4)
Quarter: 2024Q1

REPORT INFORMATION
  Report Type: Report from Study
  Country: US (occurrence: US)
  Receive Date: 20231228
  Receipt Date: 20240216
  Transmission Date: 20240410
  Serious: Yes (Hospitalization, Other)
  Sender: FDA-Public Use
  Company Number: US-GILEAD-2023-0656307

PATIENT
  Age: 73 Year
  Sex: Female

DRUGS (4)
  1. AMBRISENTAN [Suspect]
     Active Substance: AMBRISENTAN
     Indication: Pulmonary arterial hypertension
     Dosage: 5 MG, QD
     Route: 065
     Dates: start: 20230713
  2. AMBRISENTAN [Suspect]
     Active Substance: AMBRISENTAN
     Dosage: 10 MG, QD
     Route: 065
     Dates: start: 20230713
  3. ELIQUIS [Concomitant]
     Active Substance: APIXABAN
     Route: 065
  4. TADALAFIL [Concomitant]
     Active Substance: TADALAFIL
     Route: 065

REACTIONS (6)
  - Dehydration [Unknown]
  - Parainfluenzae virus infection [Unknown]
  - Pneumonia [Unknown]
  - Asthenia [Unknown]
  - Influenza [Unknown]
  - Arthropathy [Unknown]

NARRATIVE: CASE EVENT DATE: 20231104
